FAERS Safety Report 25142142 (Version 4)
Quarter: 2025Q3

REPORT INFORMATION
  Report Type: Spontaneous
  Country: JP (occurrence: JP)
  Receive Date: 20250331
  Receipt Date: 20250803
  Transmission Date: 20251021
  Serious: Yes (Hospitalization, Other)
  Sender: ALEXION PHARMACEUTICALS
  Company Number: JP-ASTRAZENECA-250028960_013020_P_1

PATIENT
  Age: 80 Year
  Sex: Female
  Weight: 33 kg

DRUGS (7)
  1. TAGRISSO [Suspect]
     Active Substance: OSIMERTINIB
     Indication: Product used for unknown indication
     Dosage: 80 MILLIGRAM, QD
     Dates: start: 20240613
  2. TAGRISSO [Suspect]
     Active Substance: OSIMERTINIB
     Indication: Non-small cell lung cancer
     Dosage: AFTER BREAKFAST
     Dates: start: 20240613
  3. ANAMORELIN HYDROCHLORIDE [Concomitant]
     Active Substance: ANAMORELIN HYDROCHLORIDE
     Indication: Non-small cell lung cancer
     Route: 065
  4. LANSOPRAZOLE [Concomitant]
     Active Substance: LANSOPRAZOLE
     Indication: Prophylaxis against gastrointestinal ulcer
     Dosage: AFTER BREAKFAST
  5. MICARDIS [Concomitant]
     Active Substance: TELMISARTAN
     Dosage: AFTER BREAKFAST
  6. NIFEDIPINE [Concomitant]
     Active Substance: NIFEDIPINE
     Dosage: AFTER BREAKFAST
  7. BISOPROLOL FUMARATE [Concomitant]
     Active Substance: BISOPROLOL FUMARATE
     Indication: Tachycardia
     Dosage: AFTER BREAKFAST
     Dates: start: 20240926

REACTIONS (2)
  - Cataract [Unknown]
  - Pneumothorax [Recovered/Resolved]

NARRATIVE: CASE EVENT DATE: 20241219
